FAERS Safety Report 10461389 (Version 2)
Quarter: 2014Q4

REPORT INFORMATION
  Report Type: Spontaneous
  Country: US (occurrence: None)
  Receive Date: 20140915
  Receipt Date: 20141229
  Transmission Date: 20150528
  Serious: Yes (Hospitalization)
  Sender: FDA-Public Use
  Company Number: 2014TASUS000468

PATIENT
  Age: 61 Year
  Sex: Male
  Weight: 81.6 kg

DRUGS (4)
  1. HETLIOZ [Suspect]
     Active Substance: TASIMELTEON
     Indication: CIRCADIAN RHYTHM SLEEP DISORDER
     Route: 048
     Dates: start: 2014
  2. OMEPRAZOLE. [Concomitant]
     Active Substance: OMEPRAZOLE
  3. ALFUZOSIN (ALFUZOSIN HYDROCHLORIDE) [Concomitant]
  4. ZETIA [Concomitant]
     Active Substance: EZETIMIBE

REACTIONS (5)
  - Loss of consciousness [None]
  - Troponin increased [None]
  - Tremor [None]
  - Seizure [None]
  - Myocardial necrosis marker increased [None]

NARRATIVE: CASE EVENT DATE: 2014
